FAERS Safety Report 8462664-5 (Version None)
Quarter: 2012Q2

REPORT INFORMATION
  Report Type: 
  Country: None (occurrence: None)
  Receive Date: 20120625
  Receipt Date: 20120619
  Transmission Date: 20120825
  Serious: Yes (Hospitalization)
  Sender: FDA-Public Use
  Company Number: CA-ROCHE-1067718

PATIENT
  Sex: Female
  Weight: 79.904 kg

DRUGS (4)
  1. PREDNISONE [Concomitant]
  2. ACTEMRA [Suspect]
     Dosage: THERAPY OF TOCILIZUMAB DISCONTINUED
     Dates: start: 20110623
  3. ACTEMRA [Suspect]
     Dosage: THERAPY ON HOLD
     Dates: start: 20111114, end: 20120426
  4. ACTEMRA [Suspect]
     Indication: RHEUMATOID ARTHRITIS
     Dosage: THERAPY OF TOCILIZUMAB DISCONTINUED
     Route: 042
     Dates: start: 20110520

REACTIONS (2)
  - CHOLECYSTITIS [None]
  - BLADDER INJURY [None]
